FAERS Safety Report 7789680-0 (Version None)
Quarter: 2011Q3

REPORT INFORMATION
  Report Type: 
  Country: None (occurrence: None)
  Receive Date: 20110930
  Receipt Date: 20110919
  Transmission Date: 20111222
  Serious: Yes (Other)
  Sender: FDA-Public Use
  Company Number: DE-MYLANLABS-2011S1019443

PATIENT
  Sex: Female

DRUGS (1)
  1. DOXYCYCLINE [Suspect]
     Indication: PERIODONTITIS
     Route: 048

REACTIONS (3)
  - RETCHING [None]
  - HEADACHE [None]
  - PHOTOPHOBIA [None]
